FAERS Safety Report 7723379-1 (Version None)
Quarter: 2011Q3

REPORT INFORMATION
  Report Type: 
  Country: None (occurrence: None)
  Receive Date: 20110826
  Receipt Date: 20110815
  Transmission Date: 20111222
  Serious: Yes (Life-Threatening, Hospitalization, Other)
  Sender: FDA-Public Use
  Company Number: 2011P1008313

PATIENT
  Age: 24 Year
  Sex: Male

DRUGS (3)
  1. ALBENDAZOLE (NO PREF. NAME) [Suspect]
     Indication: FILARIASIS LYMPHATIC
     Dosage: 1 TABLET
     Dates: start: 20110723
  2. ETHANOL [Concomitant]
  3. MECTIZAN [Suspect]
     Indication: FILARIASIS LYMPHATIC
     Dosage: 4 TABLET
     Dates: start: 20110723

REACTIONS (5)
  - GASTROENTERITIS [None]
  - RASH [None]
  - ENCEPHALOPATHY [None]
  - DEPRESSED LEVEL OF CONSCIOUSNESS [None]
  - CONJUNCTIVAL HAEMORRHAGE [None]
